FAERS Safety Report 5498113-9 (Version None)
Quarter: 2007Q4

REPORT INFORMATION
  Report Type: 
  Country: None (occurrence: None)
  Receive Date: 20071025
  Receipt Date: 20071017
  Transmission Date: 20080405
  Serious: Yes (Hospitalization)
  Sender: FDA-Public Use
  Company Number: US-ROXANE LABORATORIES, INC-2007-BP-22883RO

PATIENT
  Sex: Female

DRUGS (12)
  1. PREDNISONE TAB [Suspect]
     Indication: MULTIPLE SCLEROSIS
     Route: 048
     Dates: end: 20070901
  2. REBIF [Suspect]
     Indication: MULTIPLE SCLEROSIS
     Dosage: 44 MCG, 3 IN 1 WEEK
     Route: 058
     Dates: start: 20020603
  3. WELLBUTRIN [Suspect]
     Indication: DEPRESSION
     Dates: end: 20070901
  4. FENTANYL TRANSDERMAL SYSTEM [Suspect]
     Indication: NEURALGIA
     Route: 061
     Dates: start: 20070601, end: 20070901
  5. AMBIEN CR [Suspect]
     Indication: SLEEP DISORDER
     Dates: start: 20070601, end: 20070901
  6. ADVAIR DISKUS 100/50 [Concomitant]
     Indication: CHRONIC OBSTRUCTIVE PULMONARY DISEASE
  7. PROVENTIL [Concomitant]
     Indication: CHRONIC OBSTRUCTIVE PULMONARY DISEASE
  8. SPIRIVA [Concomitant]
     Indication: CHRONIC OBSTRUCTIVE PULMONARY DISEASE
  9. RESTORIL [Concomitant]
     Indication: SLEEP DISORDER
  10. CARTIA XT [Concomitant]
  11. TOPROL-XL [Concomitant]
  12. COUMADIN [Concomitant]

REACTIONS (8)
  - BREAKTHROUGH PAIN [None]
  - CHRONIC OBSTRUCTIVE PULMONARY DISEASE [None]
  - CRANIAL NERVE DISORDER [None]
  - DYSKINESIA [None]
  - DYSPNOEA [None]
  - FACIAL PAIN [None]
  - PAIN IN JAW [None]
  - PSYCHOTIC DISORDER [None]
